FAERS Safety Report 7898454-1 (Version None)
Quarter: 2011Q4

REPORT INFORMATION
  Report Type: 
  Country: None (occurrence: None)
  Receive Date: 20111103
  Receipt Date: 20111027
  Transmission Date: 20120403
  Serious: Yes (Hospitalization)
  Sender: FDA-Public Use
  Company Number: GER/UKI/11/0021727

PATIENT
  Age: 53 Year
  Sex: Female

DRUGS (7)
  1. ALISKIREN (ALISKIREN) [Suspect]
     Indication: HYPERTENSION
     Dosage: 300 MG, 1 IN 1 D, ORAL
     Route: 048
     Dates: start: 20110801
  2. BENDROFLUMETHIAZIDE (BENDROFLUMETHIAZIDE) [Concomitant]
  3. AMLODIPINE [Concomitant]
  4. BISOPROLOL FUMARATE [Concomitant]
  5. CETIRIZINE [Suspect]
     Indication: RHINITIS SEASONAL
     Dosage: 10 MG, 1 IN 1 D
     Dates: start: 20110801
  6. DOXAZOSIN MESYLATE [Concomitant]
  7. ANGITIL SR (DILTIAZEM HYDROCHLORIDE) [Concomitant]

REACTIONS (2)
  - ANGIOEDEMA [None]
  - RASH GENERALISED [None]
